FAERS Safety Report 10781252 (Version 1)
Quarter: 2015Q1

REPORT INFORMATION
  Report Type: Spontaneous
  Country: US (occurrence: None)
  Receive Date: 20150209
  Receipt Date: 20150209
  Transmission Date: 20150721
  Serious: Yes (Other)
  Sender: FDA-Public Use
  Company Number: None

PATIENT
  Age: 44 Year
  Sex: Male
  Weight: 102.06 kg

DRUGS (1)
  1. ZOLPIDEM [Suspect]
     Active Substance: ZOLPIDEM\ZOLPIDEM TARTRATE
     Indication: INSOMNIA
     Dosage: TAKEN BY MOUTH
     Dates: start: 20130809, end: 20140714

REACTIONS (7)
  - Imprisonment [None]
  - Product quality issue [None]
  - Legal problem [None]
  - Road traffic accident [None]
  - Feeling abnormal [None]
  - Stress [None]
  - Somnambulism [None]

NARRATIVE: CASE EVENT DATE: 20140714
